FAERS Safety Report 6939203-0 (Version None)
Quarter: 2010Q3

REPORT INFORMATION
  Report Type: 
  Country: None (occurrence: None)
  Receive Date: 20100824
  Receipt Date: 20100723
  Transmission Date: 20110219
  Serious: Yes (Death, Life-Threatening)
  Sender: FDA-Public Use
  Company Number: US-BAXTER-2010BH019785

PATIENT
  Age: 54 Year
  Sex: Male

DRUGS (1)
  1. PHENYLEPHRINE HYDROCHLORIDE [Suspect]
     Indication: BLOOD PRESSURE MANAGEMENT
     Route: 042
     Dates: start: 20091018

REACTIONS (4)
  - BRADYCARDIA [None]
  - CARDIO-RESPIRATORY ARREST [None]
  - DRUG ADMINISTRATION ERROR [None]
  - HYPOTENSION [None]
